FAERS Safety Report 6490588-1 (Version None)
Quarter: 2009Q4

REPORT INFORMATION
  Report Type: 
  Country: None (occurrence: None)
  Receive Date: 20091208
  Receipt Date: 20091123
  Transmission Date: 20100525
  Serious: Yes (Life-Threatening, Hospitalization, Other)
  Sender: FDA-Public Use
  Company Number: TPA2009A03449

PATIENT
  Age: 64 Year
  Sex: Female

DRUGS (11)
  1. KAPIDEX [Suspect]
     Indication: GASTRITIS
     Dosage: 60 MG, PER ORAL
     Route: 048
     Dates: start: 20091007, end: 20091001
  2. KAPIDEX [Suspect]
     Indication: GASTROOESOPHAGEAL REFLUX DISEASE
     Dosage: 60 MG, PER ORAL
     Route: 048
     Dates: start: 20091007, end: 20091001
  3. ACYCLOVIR [Suspect]
     Indication: HERPES ZOSTER
     Dosage: 400 MG, 3 IN 1. D
  4. AUGMENTIN '125' [Suspect]
     Indication: COUGH
  5. AUGMENTIN '125' [Suspect]
     Indication: OROPHARYNGEAL PAIN
  6. CEFUROXIME [Concomitant]
  7. PREDNISONE [Concomitant]
  8. DIPHENOXYLATE (DIPHENOXYLATE) [Concomitant]
  9. HYDROXYZINE [Concomitant]
  10. SIMVASTATIN [Concomitant]
  11. THYROID TAB [Concomitant]

REACTIONS (28)
  - ACTIVATED PARTIAL THROMBOPLASTIN TIME PROLONGED [None]
  - ACUTE RESPIRATORY DISTRESS SYNDROME [None]
  - BLOOD POTASSIUM DECREASED [None]
  - BLOOD SODIUM INCREASED [None]
  - DEHYDRATION [None]
  - DEVICE RELATED INFECTION [None]
  - DISSEMINATED INTRAVASCULAR COAGULATION [None]
  - ENTEROBACTER INFECTION [None]
  - EOSINOPHILIA [None]
  - HAEMATOCRIT DECREASED [None]
  - HAEMOGLOBIN DECREASED [None]
  - HYPOTENSION [None]
  - KLEBSIELLA INFECTION [None]
  - LUNG INFILTRATION [None]
  - NEUTROPENIA [None]
  - ORAL CANDIDIASIS [None]
  - OROPHARYNGEAL PAIN [None]
  - PNEUMONIA [None]
  - PROTHROMBIN LEVEL INCREASED [None]
  - RENAL FAILURE ACUTE [None]
  - RESPIRATORY FAILURE [None]
  - SEPTIC SHOCK [None]
  - SERRATIA INFECTION [None]
  - STAPHYLOCOCCAL INFECTION [None]
  - STEVENS-JOHNSON SYNDROME [None]
  - THROMBOCYTOPENIA [None]
  - TOXIC EPIDERMAL NECROLYSIS [None]
  - WOUND SECRETION [None]
